FAERS Safety Report 12280270 (Version 1)
Quarter: 2016Q2

REPORT INFORMATION
  Report Type: Spontaneous
  Country: MK (occurrence: MK)
  Receive Date: 20160419
  Receipt Date: 20160419
  Transmission Date: 20160815
  Serious: Yes (Life-Threatening)
  Sender: FDA-Public Use
  Company Number: MK-ROCHE-1742978

PATIENT
  Age: 10 Year
  Sex: Male
  Weight: 45 kg

DRUGS (2)
  1. SYNOPEN [Concomitant]
     Indication: JUVENILE IDIOPATHIC ARTHRITIS
     Dosage: 20MG/2ML
     Route: 030
     Dates: start: 20151207, end: 20151207
  2. ACTEMRA [Suspect]
     Active Substance: TOCILIZUMAB
     Indication: JUVENILE IDIOPATHIC ARTHRITIS
     Route: 042
     Dates: start: 201510, end: 20151207

REACTIONS (3)
  - Angioedema [Recovered/Resolved]
  - Vasculitis [Recovered/Resolved]
  - Urticaria [Recovered/Resolved]

NARRATIVE: CASE EVENT DATE: 20151207
